FAERS Safety Report 19141492 (Version 2)
Quarter: 2021Q2

REPORT INFORMATION
  Report Type: Spontaneous
  Country: US (occurrence: US)
  Receive Date: 20210415
  Receipt Date: 20210623
  Transmission Date: 20210717
  Serious: Yes (Death, Life-Threatening, Hospitalization)
  Sender: FDA-Public Use
  Company Number: US-TEVA-2021-US-1900092

PATIENT
  Age: 65 Year
  Sex: Female

DRUGS (4)
  1. FAT EMULSION NOS [Suspect]
     Active Substance: EGG PHOSPHOLIPIDS\SAFFLOWER OIL\SOYBEAN OIL
     Indication: TOXICITY TO VARIOUS AGENTS
     Route: 065
  2. VERAPAMIL [Suspect]
     Active Substance: VERAPAMIL HYDROCHLORIDE
     Indication: OVERDOSE
     Dosage: INGESTED 10 TO 20 TABLETS
     Route: 048
  3. INSULIN [Concomitant]
     Active Substance: INSULIN NOS
     Indication: TOXICITY TO VARIOUS AGENTS
     Dosage: CONTINUOUS IV INFUSION OF HIGH?DOSE INSULIN
     Route: 041
  4. DEXTROSE. [Concomitant]
     Active Substance: DEXTROSE
     Indication: TOXICITY TO VARIOUS AGENTS
     Route: 065

REACTIONS (7)
  - Unresponsive to stimuli [Fatal]
  - Overdose [Unknown]
  - Toxicity to various agents [Unknown]
  - Cardiogenic shock [Fatal]
  - Mental status changes [Fatal]
  - Hypertriglyceridaemia [Recovering/Resolving]
  - Incorrect product administration duration [Unknown]
